FAERS Safety Report 9400476 (Version 3)
Quarter: 2013Q3

REPORT INFORMATION
  Report Type: Spontaneous
  Country: US (occurrence: US)
  Receive Date: 20130715
  Receipt Date: 20130903
  Transmission Date: 20140515
  Serious: Yes (Other)
  Sender: FDA-Public Use
  Company Number: US-JNJFOC-20130706943

PATIENT
  Age: 25 Year
  Sex: Female
  Weight: 63.5 kg

DRUGS (6)
  1. NUCYNTA [Suspect]
     Indication: THORACIC OUTLET SYNDROME
     Dosage: 2 TIMES A DAY
     Route: 048
  2. NUCYNTA [Suspect]
     Indication: THORACIC OUTLET SYNDROME
     Dosage: THREE TIMES A DAY
     Route: 048
     Dates: start: 201301, end: 20130630
  3. NUCYNTA [Suspect]
     Indication: PAIN
     Dosage: 2 TIMES A DAY
     Route: 048
  4. NUCYNTA [Suspect]
     Indication: PAIN
     Dosage: THREE TIMES A DAY
     Route: 048
     Dates: start: 201301, end: 20130630
  5. TRAMADOL [Suspect]
     Indication: PAIN
     Dosage: 2-3 TIMES A DAY
     Route: 048
  6. CYCLOBENZAPRINE [Concomitant]
     Indication: MUSCLE RELAXANT THERAPY
     Route: 048
     Dates: start: 201306

REACTIONS (3)
  - Amnesia [Recovering/Resolving]
  - Dyspnoea [Recovered/Resolved]
  - Palpitations [Recovered/Resolved]
